FAERS Safety Report 7201204-5 (Version None)
Quarter: 2010Q4

REPORT INFORMATION
  Report Type: 
  Country: None (occurrence: None)
  Receive Date: 20101227
  Receipt Date: 20101227
  Transmission Date: 20110411
  Serious: Yes (Other)
  Sender: FDA-Public Use
  Company Number: None

PATIENT
  Sex: Female
  Weight: 27 kg

DRUGS (2)
  1. ENBREL [Suspect]
     Indication: JUVENILE ARTHRITIS
     Dosage: 25 MG WEEKLY SQ
     Route: 058
     Dates: start: 20040601, end: 20101021
  2. NAPROXEN [Concomitant]

REACTIONS (2)
  - HODGKIN'S DISEASE [None]
  - UPPER RESPIRATORY TRACT INFECTION [None]
